FAERS Safety Report 4308473-X (Version None)
Quarter: 2004Q1

REPORT INFORMATION
  Report Type: 
  Country: None (occurrence: None)
  Receive Date: 20040226
  Receipt Date: 20031023
  Transmission Date: 20041129
  Serious: Yes (Hospitalization)
  Sender: FDA-Public Use
  Company Number: 2003182682US

PATIENT
  Sex: Female

DRUGS (2)
  1. CELEBREX [Suspect]
  2. CHEMOTHERAPY (CHEMOTHERAPY) [Suspect]

REACTIONS (2)
  - GASTROINTESTINAL DISORDER [None]
  - SEPSIS [None]
